FAERS Safety Report 16790953 (Version 1)
Quarter: 2019Q3

REPORT INFORMATION
  Report Type: Spontaneous
  Country: US (occurrence: US)
  Receive Date: 20190910
  Receipt Date: 20190910
  Transmission Date: 20191005
  Serious: No
  Sender: FDA-Public Use
  Company Number: US-ASTRAZENECA-2019SF16129

PATIENT
  Sex: Female

DRUGS (1)
  1. FASENRA [Suspect]
     Active Substance: BENRALIZUMAB
     Route: 058

REACTIONS (7)
  - Dyspnoea [Unknown]
  - Dizziness [Unknown]
  - Chills [Unknown]
  - Headache [Unknown]
  - Nausea [Unknown]
  - Hypertension [Unknown]
  - Pyrexia [Unknown]
